FAERS Safety Report 9205822 (Version 1)
Quarter: 2013Q2

REPORT INFORMATION
  Report Type: Spontaneous
  Country: GB (occurrence: GB)
  Receive Date: 20130403
  Receipt Date: 20130403
  Transmission Date: 20140414
  Serious: Yes (Death)
  Sender: FDA-Public Use
  Company Number: GB-AMGEN-GBRSP2013022784

PATIENT
  Age: 63 Year
  Sex: Male
  Weight: 51.19 kg

DRUGS (2)
  1. ENBREL [Suspect]
     Indication: RHEUMATOID ARTHRITIS
     Dosage: UNK
     Route: 051
  2. METHOTREXATE [Concomitant]
     Dosage: UNK

REACTIONS (2)
  - Myeloid leukaemia [Fatal]
  - Lymphocytic leukaemia [Fatal]
